FAERS Safety Report 18567955 (Version 2)
Quarter: 2020Q4

REPORT INFORMATION
  Report Type: Spontaneous
  Country: JP (occurrence: JP)
  Receive Date: 20201202
  Receipt Date: 20201217
  Transmission Date: 20210114
  Serious: Yes (Other)
  Sender: FDA-Public Use
  Company Number: JP-GEHPL-2020JSU006045AA

PATIENT

DRUGS (4)
  1. MERCAZOLE [THIAMAZOLE] [Concomitant]
     Active Substance: METHIMAZOLE
     Dosage: 10 MG/DAY
     Route: 048
  2. THYRADIN S [Concomitant]
     Active Substance: LEVOTHYROXINE SODIUM
     Dosage: 75 MICRO G/DAY
     Route: 048
  3. OMNIPAQUE [Suspect]
     Active Substance: IOHEXOL
     Indication: NERVE BLOCK
     Dosage: 3 ML, SINGLE
     Route: 008
     Dates: start: 20171030, end: 20171030
  4. OMNIPAQUE [Suspect]
     Active Substance: IOHEXOL
     Indication: INTERVERTEBRAL DISC PROTRUSION

REACTIONS (2)
  - Off label use [Recovered/Resolved]
  - Hypothyroidism [Recovered/Resolved]
